FAERS Safety Report 13466703 (Version 1)
Quarter: 2017Q2

REPORT INFORMATION
  Report Type: Spontaneous
  Country: JP (occurrence: JP)
  Receive Date: 20170421
  Receipt Date: 20170421
  Transmission Date: 20170830
  Serious: Yes (Other)
  Sender: FDA-Public Use
  Company Number: JP-MYLANLABS-2017M1024349

PATIENT

DRUGS (1)
  1. PIPERACILLIN/TAZOBACTAM [Suspect]
     Active Substance: PIPERACILLIN SODIUM\TAZOBACTAM SODIUM
     Indication: PANCREAS INFECTION
     Dosage: 4.5 G PER DAY
     Route: 065

REACTIONS (2)
  - Drug eruption [Recovering/Resolving]
  - Dermatitis psoriasiform [Recovering/Resolving]
